FAERS Safety Report 13390556 (Version 5)
Quarter: 2020Q2

REPORT INFORMATION
  Report Type: Report from Study
  Country: TH (occurrence: TH)
  Receive Date: 20170331
  Receipt Date: 20200523
  Transmission Date: 20200713
  Serious: Yes (Death, Life-Threatening, Other)
  Sender: FDA-Public Use
  Company Number: TH-CIPLA LTD.-2017TH05078

PATIENT

DRUGS (65)
  1. FUROSEMIDE. [Concomitant]
     Active Substance: FUROSEMIDE
     Indication: FLUID OVERLOAD
     Dosage: 80 MG, QD
     Route: 042
     Dates: start: 20170308, end: 20170308
  2. TAZOCIN [Concomitant]
     Active Substance: PIPERACILLIN SODIUM\TAZOBACTAM SODIUM
     Indication: FEBRILE NEUTROPENIA
     Dosage: 2.25 GRAM, QID
     Route: 042
     Dates: start: 20170307, end: 20170314
  3. VINCRISTINE [Concomitant]
     Active Substance: VINCRISTINE
     Indication: CHEMOTHERAPY
     Dosage: 2000 MCG, QD
     Route: 042
     Dates: start: 20170308, end: 20170308
  4. VANCOMYCIN [Concomitant]
     Active Substance: VANCOMYCIN
     Indication: CLOSTRIDIUM DIFFICILE INFECTION
     Dosage: 2000 MILLILITER, QD
     Route: 042
     Dates: start: 20170323
  5. ACETYLCYSTEINE. [Concomitant]
     Active Substance: ACETYLCYSTEINE
     Indication: SECRETION DISCHARGE
     Dosage: 600 MG, TID
     Route: 048
     Dates: start: 20170313, end: 20170330
  6. CALCIUM POLYSTYRENE RESIN [Concomitant]
     Indication: HYPERKALAEMIA
     Dosage: 100 G, BID
     Route: 048
     Dates: start: 20170306, end: 20170306
  7. METOCLOPRAMIDE. [Concomitant]
     Active Substance: METOCLOPRAMIDE
     Indication: FEEDING INTOLERANCE
     Dosage: 10 MG, QD
     Route: 042
     Dates: start: 20170322, end: 20170323
  8. ONDANSETRON [Concomitant]
     Active Substance: ONDANSETRON
     Indication: PROPHYLAXIS
     Dosage: 8 MILLIGRAM, QD
     Route: 042
     Dates: start: 20170308, end: 20170308
  9. PREDNISOLONE. [Concomitant]
     Active Substance: PREDNISOLONE
     Indication: CHEMOTHERAPY
     Dosage: 90 MILLIGRAM, BID
     Route: 048
     Dates: start: 20170307, end: 20170312
  10. DEXTROSE. [Concomitant]
     Active Substance: DEXTROSE
     Indication: HYPOGLYCAEMIA
     Dosage: 50 MILLILITER, PRN/SOS
     Route: 042
     Dates: start: 20170325, end: 20170327
  11. ALUMINIUM AND MAGNESIUM [Concomitant]
     Active Substance: ALUMINUM HYDROXIDE\MAGNESIUM HYDROXIDE
     Indication: CONSTIPATION
     Dosage: 30 ML, PRN/SOS
     Route: 048
     Dates: start: 20170317, end: 20170318
  12. DOXORUBICIN HYDROCHLORIDE. [Concomitant]
     Active Substance: DOXORUBICIN HYDROCHLORIDE
     Indication: CHEMOTHERAPY
     Dosage: 70 MILLIGRAM, QD
     Route: 042
     Dates: start: 20170308, end: 20170308
  13. JOULIE SOL [Concomitant]
     Indication: HYPOPHOSPHATAEMIA
     Dosage: 120 CC, BID
     Route: 048
     Dates: start: 20170311, end: 20170322
  14. KEPPRA [Concomitant]
     Active Substance: LEVETIRACETAM
     Dosage: 1000 MG, BID
     Route: 042
     Dates: start: 20170318, end: 20170324
  15. LIDOCAINE VISCOUS [Concomitant]
     Active Substance: LIDOCAINE HYDROCHLORIDE
     Indication: MUCOSAL INFLAMMATION
     Dosage: 20 ML, TID
     Route: 061
     Dates: start: 20170310, end: 20170311
  16. SENOKOT [Concomitant]
     Active Substance: SENNOSIDES
     Indication: CONSTIPATION
     Dosage: 15 MILLIGRAM, PRN/SOS
     Route: 048
     Dates: start: 20170312, end: 20170312
  17. VITAMIN B1 [Concomitant]
     Active Substance: THIAMINE HYDROCHLORIDE
     Indication: VITAMIN B COMPLEX DEFICIENCY
     Dosage: 100 MILLIGRAM, QD
     Route: 042
     Dates: start: 20170310
  18. KCL [Concomitant]
     Active Substance: POTASSIUM CHLORIDE
     Indication: HYPOKALAEMIA
     Dosage: 120 MILLILITER, BID (10 % SOLUTION)
     Route: 048
     Dates: start: 20170311, end: 20170320
  19. KCL [Concomitant]
     Active Substance: POTASSIUM CHLORIDE
     Dosage: 60 MILLIEQUIVALENT, QD
     Route: 042
     Dates: start: 20170320, end: 20170330
  20. DEPAKINE CHRONO [Concomitant]
     Active Substance: VALPROATE SODIUM
     Indication: METASTASES TO CENTRAL NERVOUS SYSTEM
     Dosage: 2000 MG, BID
     Route: 048
     Dates: start: 20170312, end: 20170318
  21. DIAZEPAM. [Concomitant]
     Active Substance: DIAZEPAM
     Indication: INSOMNIA
     Dosage: 5 MILLIGRAM, BID
     Route: 042
     Dates: start: 20170318, end: 20170318
  22. FENTANYL. [Concomitant]
     Active Substance: FENTANYL
     Indication: PAIN
     Dosage: 60 MCG, BID
     Route: 042
     Dates: start: 20170311, end: 20170325
  23. MAGNESIUM SULPHATE [MAGNESIUM SULFATE] [Concomitant]
     Active Substance: MAGNESIUM SULFATE
     Indication: HYPOMAGNESAEMIA
     Dosage: 4 GRAM, QD
     Route: 042
     Dates: start: 20170321, end: 20170321
  24. FLAGYL [Concomitant]
     Active Substance: METRONIDAZOLE\METRONIDAZOLE HYDROCHLORIDE
     Dosage: 1500 MILLIGRAM, TID
     Route: 042
     Dates: start: 20170323, end: 20170330
  25. MORPHINE [Concomitant]
     Active Substance: MORPHINE
     Dosage: 60 MILLIGRAM, QD
     Route: 042
     Dates: start: 20170323, end: 20170323
  26. MORPHINE [Concomitant]
     Active Substance: MORPHINE
     Dosage: 30 MILLIGRAM, QD
     Route: 042
     Dates: start: 20170327, end: 20170330
  27. DORMICUM                           /00036201/ [Concomitant]
     Active Substance: NITRAZEPAM
     Indication: INSOMNIA
     Dosage: 30 MILLIGRAM, QD
     Route: 042
     Dates: start: 20170323, end: 20170323
  28. PARACETAMOL [Concomitant]
     Active Substance: ACETAMINOPHEN
     Indication: PYREXIA
     Dosage: 500 MILLIGRAM, PRN/SOS
     Route: 048
     Dates: start: 20170313, end: 20170317
  29. TRAMADOL. [Concomitant]
     Active Substance: TRAMADOL
     Indication: PAIN
     Dosage: 150 MILLIGRAM, TID
     Route: 048
     Dates: start: 20170311, end: 20170321
  30. VANCOMYCIN [Concomitant]
     Active Substance: VANCOMYCIN
     Indication: FEBRILE NEUTROPENIA
     Dosage: 2 GRAM, BID
     Route: 042
     Dates: start: 20170316, end: 20170330
  31. KCL [Concomitant]
     Active Substance: POTASSIUM CHLORIDE
     Dosage: 60 MILLIEQUIVALENT, QD
     Route: 042
     Dates: start: 20170324, end: 20170330
  32. AMPHOTERICIN B. [Concomitant]
     Active Substance: AMPHOTERICIN B
     Indication: FUNGAL INFECTION
     Dosage: 50 MG, QD
     Route: 042
     Dates: start: 20170323, end: 20170325
  33. CLOTRIMAZOLE. [Concomitant]
     Active Substance: CLOTRIMAZOLE
     Indication: ORAL CANDIDIASIS
     Dosage: 50 MG, PRN/SOS
     Route: 048
     Dates: start: 20170307, end: 20170314
  34. CHLORPHENIRAMINE                   /00072501/ [Concomitant]
     Active Substance: CHLORPHENIRAMINE
     Indication: PREMEDICATION
     Dosage: 10 MG, PRN/SOS
     Route: 042
     Dates: start: 20170324, end: 20170330
  35. ENDOXAN [CYCLOPHOSPHAMIDE] [Concomitant]
     Active Substance: CYCLOPHOSPHAMIDE
     Indication: CHEMOTHERAPY
     Dosage: 1088 MG, QD
     Route: 042
     Dates: start: 20170308, end: 20170308
  36. G-CSF [Concomitant]
     Active Substance: GRANULOCYTE COLONY-STIMULATING FACTOR NOS
     Indication: NEUTROPENIA
     Dosage: 300 MCG, QD
     Route: 042
     Dates: start: 20170322, end: 20170330
  37. MORPHINE [Concomitant]
     Active Substance: MORPHINE
     Indication: PAIN
     Dosage: 3 MILLIGRAM, QD
     Route: 042
     Dates: start: 20170312, end: 20170314
  38. DORMICUM                           /00036201/ [Concomitant]
     Active Substance: NITRAZEPAM
     Dosage: 15 MILLIGRAM, QD
     Route: 042
     Dates: start: 20170327, end: 20170330
  39. PARACETAMOL [Concomitant]
     Active Substance: ACETAMINOPHEN
     Dosage: 500 MILLIGRAM, QD BY TUBE FEED
     Route: 065
     Dates: start: 20170323, end: 20170330
  40. AMBISOME [Suspect]
     Active Substance: AMPHOTERICIN B
     Indication: FUNGAL INFECTION
     Dosage: 3 MILLIGRAM/KILOGRAM, QD PER DAY
     Route: 042
     Dates: start: 20170326, end: 20170330
  41. MAGNESIUM SULPHATE [MAGNESIUM SULFATE] [Concomitant]
     Active Substance: MAGNESIUM SULFATE
     Dosage: 4 GRAM, QD
     Route: 042
     Dates: start: 20170328, end: 20170330
  42. OMEPRAZOLE. [Concomitant]
     Active Substance: OMEPRAZOLE
     Indication: PROPHYLAXIS
     Dosage: 40 MILLIGRAM, QD
     Route: 042
     Dates: start: 20170318, end: 20170319
  43. ONDANSETRON [Concomitant]
     Active Substance: ONDANSETRON
     Indication: VOMITING
     Dosage: 8 MILLIGRAM, QD
     Route: 042
     Dates: start: 20170306, end: 20170306
  44. ONDANSETRON [Concomitant]
     Active Substance: ONDANSETRON
     Dosage: 16 MILLIGRAM, BID
     Route: 048
     Dates: start: 20170308, end: 20170312
  45. PETHIDINE [Concomitant]
     Active Substance: MEPERIDINE
     Indication: PAIN
     Dosage: 25 MILLIGRAM, QD
     Route: 042
     Dates: start: 20170315, end: 20170315
  46. HEPARIN [Concomitant]
     Active Substance: HEPARIN SODIUM
     Indication: FLUSHING
     Dosage: 4.5 MILLILITER, TID, FLUSH TRIPPLELINE
     Route: 065
     Dates: start: 20170329
  47. KCL [Concomitant]
     Active Substance: POTASSIUM CHLORIDE
     Dosage: 7500 MILLIGRAM, TID
     Route: 048
     Dates: start: 20170321, end: 20170322
  48. CHLORPHENIRAMINE                   /00072501/ [Concomitant]
     Active Substance: CHLORPHENIRAMINE
     Indication: PROPHYLAXIS
     Dosage: 10 MG, PRN/SOS
     Route: 042
     Dates: start: 20170317, end: 20170323
  49. DESOXIMETASONE. [Concomitant]
     Active Substance: DESOXIMETASONE
     Indication: METASTASES TO CENTRAL NERVOUS SYSTEM
     Dosage: 20 G, BID
     Route: 061
     Dates: start: 20170307, end: 20170322
  50. DIPOTASSIUM PHOSPHATE [Concomitant]
     Active Substance: POTASSIUM PHOSPHATE, DIBASIC
     Indication: HYPOPHOSPHATAEMIA
     Dosage: 40 MILLIEQUIVALENT, QD
     Route: 042
     Dates: start: 20170322, end: 20170322
  51. ELOMET [Concomitant]
     Active Substance: MOMETASONE FUROATE
     Indication: METASTASES TO CENTRAL NERVOUS SYSTEM
     Dosage: 30 GRAM, BID
     Route: 061
     Dates: start: 20170307, end: 20170322
  52. FUROSEMIDE. [Concomitant]
     Active Substance: FUROSEMIDE
     Dosage: 80 MG, BID
     Route: 042
     Dates: start: 20170316, end: 20170330
  53. FUROSEMIDE. [Concomitant]
     Active Substance: FUROSEMIDE
     Dosage: 1000 MILLIGRAM, QID
     Route: 042
     Dates: start: 20170330, end: 20170330
  54. HYDROXYZINE [Concomitant]
     Active Substance: HYDROXYZINE HYDROCHLORIDE
     Indication: PRURITUS
     Dosage: 160 MG, QID
     Route: 048
     Dates: start: 20170306, end: 20170331
  55. FLAGYL [Concomitant]
     Active Substance: METRONIDAZOLE\METRONIDAZOLE HYDROCHLORIDE
     Indication: CLOSTRIDIUM DIFFICILE INFECTION
     Dosage: 1600 MG, QD
     Route: 048
     Dates: start: 20170322, end: 20170323
  56. METHOTREXATE. [Concomitant]
     Active Substance: METHOTREXATE
     Indication: CHEMOTHERAPY
     Dosage: 5000 MILLIGRAM, QD
     Route: 042
     Dates: start: 20170306, end: 20170306
  57. OLIVE OIL [Concomitant]
     Active Substance: OLIVE OIL
     Indication: SKIN EXFOLIATION
     Dosage: 30 MILLILITER, BID
     Route: 061
     Dates: start: 20170322, end: 20170330
  58. OMEPRAZOLE. [Concomitant]
     Active Substance: OMEPRAZOLE
     Dosage: 40 MILLIGRAM, BID
     Route: 042
     Dates: start: 20170323, end: 20170330
  59. IMIPENEM [Concomitant]
     Active Substance: IMIPENEM
     Indication: FEBRILE NEUTROPENIA
     Dosage: 500 MILLIGRAM, QD
     Route: 042
     Dates: start: 20170307, end: 20170307
  60. METRONIDAZOLE. [Concomitant]
     Active Substance: METRONIDAZOLE
     Indication: CLOSTRIDIUM DIFFICILE INFECTION
     Dosage: 1600 MILLIGRAM, TID
     Route: 048
     Dates: start: 20170322, end: 20170323
  61. AMPHOTERICIN B LIPOSOMAL [Suspect]
     Active Substance: AMPHOTERICIN B
     Indication: FUNGAL INFECTION
     Dosage: 3 MG/KG PER DAY
     Route: 042
     Dates: start: 20170326
  62. MEROPENEM. [Concomitant]
     Active Substance: MEROPENEM
     Indication: FEBRILE NEUTROPENIA
     Dosage: 3 GRAM, TID
     Route: 042
     Dates: start: 20170314, end: 20170331
  63. DILANTIN [Concomitant]
     Active Substance: PHENYTOIN
     Indication: METASTASES TO CENTRAL NERVOUS SYSTEM
     Dosage: 400 MILLIGRAM, QD
     Route: 048
     Dates: start: 20170305, end: 20170305
  64. KEPPRA [Concomitant]
     Active Substance: LEVETIRACETAM
     Indication: METASTASES TO CENTRAL NERVOUS SYSTEM
     Dosage: 1000 MG, QD
     Route: 048
     Dates: start: 20170306, end: 20170312
  65. LEUCOVORINE CALCIUM [Concomitant]
     Active Substance: LEUCOVORIN CALCIUM
     Indication: CHEMOTHERAPY
     Dosage: 80 MG, QID
     Route: 042
     Dates: start: 20170307, end: 20170331

REACTIONS (2)
  - Septic shock [None]
  - Hypokalaemia [Recovered/Resolved]

NARRATIVE: CASE EVENT DATE: 20170327
